FAERS Safety Report 7898098-1 (Version None)
Quarter: 2011Q4

REPORT INFORMATION
  Report Type: 
  Country: None (occurrence: None)
  Receive Date: 20111103
  Receipt Date: 20111024
  Transmission Date: 20120403
  Serious: Yes (Hospitalization)
  Sender: FDA-Public Use
  Company Number: CIP11002860

PATIENT
  Age: 56 Year
  Sex: Female
  Weight: 50 kg

DRUGS (3)
  1. CENTRUM /00554501/ (MINERALS NOS, VITAMINS NOS) [Concomitant]
  2. ALL OTHER THERAPEUTIC PRODUCTS [Concomitant]
  3. ACTONEL [Suspect]
     Indication: OSTEOPOROSIS
     Dosage: 150 MG ONCE MONTH, ORAL
     Route: 048
     Dates: start: 20111019

REACTIONS (9)
  - URINARY TRACT INFECTION [None]
  - WEIGHT DECREASED [None]
  - GASTRIC DISORDER [None]
  - VOMITING [None]
  - FLATULENCE [None]
  - DIARRHOEA HAEMORRHAGIC [None]
  - ASTHENIA [None]
  - MYALGIA [None]
  - PYREXIA [None]
